FAERS Safety Report 24026328 (Version 1)
Quarter: 2024Q2

REPORT INFORMATION
  Report Type: Spontaneous
  Country: FR (occurrence: FR)
  Receive Date: 20240628
  Receipt Date: 20240628
  Transmission Date: 20240716
  Serious: Yes (Hospitalization, Other)
  Sender: FDA-Public Use
  Company Number: FR-AFSSAPS-DJ2024000701

PATIENT
  Age: 27 Year
  Sex: Female
  Weight: 41 kg

DRUGS (3)
  1. FLUCONAZOLE [Suspect]
     Active Substance: FLUCONAZOLE
     Indication: Intervertebral discitis
     Dosage: 400 MILLIGRAM, ONCE A DAY (400MG/D MONDAY + WEDNESDAY + FRIDAY200MG/D TUESDAY + THURSDAY + SATURDAY
     Route: 048
     Dates: start: 20240304
  2. CASPOFUNGIN [Suspect]
     Active Substance: CASPOFUNGIN
     Indication: Intervertebral discitis
     Dosage: 150 MILLIGRAM, ONCE A DAY
     Route: 042
     Dates: start: 20240308
  3. NEFOPAM HYDROCHLORIDE [Suspect]
     Active Substance: NEFOPAM HYDROCHLORIDE
     Indication: Back pain
     Dosage: 80 MILLIGRAM, ONCE A DAY
     Route: 042
     Dates: start: 202402

REACTIONS (1)
  - Partial seizures [Recovered/Resolved]

NARRATIVE: CASE EVENT DATE: 20240403
